FAERS Safety Report 7280655-7 (Version None)
Quarter: 2011Q1

REPORT INFORMATION
  Report Type: 
  Country: None (occurrence: None)
  Receive Date: 20110208
  Receipt Date: 20110201
  Transmission Date: 20110831
  Serious: Yes (Hospitalization)
  Sender: FDA-Public Use
  Company Number: A0861520A

PATIENT
  Sex: Female

DRUGS (1)
  1. AVANDIA [Suspect]
     Indication: DIABETES MELLITUS
     Dosage: 4MG TWICE PER DAY
     Route: 048
     Dates: start: 20070101, end: 20080301

REACTIONS (4)
  - CEREBROVASCULAR ACCIDENT [None]
  - RENAL FAILURE [None]
  - CARDIAC FAILURE CONGESTIVE [None]
  - CORONARY ARTERIAL STENT INSERTION [None]
